FAERS Safety Report 19806980 (Version 1)
Quarter: 2021Q3

REPORT INFORMATION
  Report Type: Spontaneous
  Country: TR (occurrence: TR)
  Receive Date: 20210908
  Receipt Date: 20210908
  Transmission Date: 20211014
  Serious: Yes (Other)
  Sender: FDA-Public Use
  Company Number: TR-FRESENIUS KABI-FK202109455

PATIENT
  Age: 54 Year
  Sex: Female

DRUGS (1)
  1. CHORIONIC GONADOTROPIN [Suspect]
     Active Substance: CHORIOGONADOTROPIN ALFA
     Indication: WEIGHT CONTROL
     Route: 058

REACTIONS (5)
  - Intentional product misuse [Recovered/Resolved]
  - Flushing [Recovered/Resolved]
  - Vaginal haemorrhage [Recovered/Resolved]
  - Breast enlargement [Recovered/Resolved]
  - Pulmonary embolism [Recovered/Resolved]
